FAERS Safety Report 10372176 (Version 2)
Quarter: 2014Q3

REPORT INFORMATION
  Report Type: Spontaneous
  Country: ES (occurrence: ES)
  Receive Date: 20140808
  Receipt Date: 20140808
  Transmission Date: 20150326
  Serious: Yes (Hospitalization)
  Sender: FDA-Public Use
  Company Number: ES-ABBVIE-12P-257-0970787-00

PATIENT
  Age: 47 Year
  Sex: Female

DRUGS (3)
  1. CLARITHROMYCIN. [Suspect]
     Active Substance: CLARITHROMYCIN
     Indication: HELICOBACTER INFECTION
     Route: 048
  2. OMEPRAZOLE. [Suspect]
     Active Substance: OMEPRAZOLE
     Indication: HELICOBACTER INFECTION
  3. AMOXICILLIN. [Suspect]
     Active Substance: AMOXICILLIN
     Indication: HELICOBACTER INFECTION

REACTIONS (3)
  - Bipolar I disorder [Recovering/Resolving]
  - Mania [Recovered/Resolved]
  - Psychotic behaviour [Recovered/Resolved]
